FAERS Safety Report 9818827 (Version 1)
Quarter: 2014Q1

REPORT INFORMATION
  Report Type: Spontaneous
  Country: US (occurrence: None)
  Receive Date: 20140114
  Receipt Date: 20140114
  Transmission Date: 20141002
  Serious: Yes (Life-Threatening, Hospitalization)
  Sender: FDA-Public Use
  Company Number: None

PATIENT
  Age: 56 Year
  Sex: Male

DRUGS (15)
  1. LISINOPRIL [Suspect]
     Route: 048
     Dates: start: 20130121, end: 20130122
  2. VENTOLIN HFA [Concomitant]
  3. ASPIRIN [Concomitant]
  4. BISACODYL [Concomitant]
  5. CHLORTHALIDONE [Concomitant]
  6. CELEXA [Concomitant]
  7. DEPAKOTE ER [Concomitant]
  8. DOCUSATE SODIUM [Concomitant]
  9. FOLIC ACID [Concomitant]
  10. LORAZEPAM [Concomitant]
  11. METFORMIN [Concomitant]
  12. LOPRESSOR [Concomitant]
  13. OMEPRAZOLE [Concomitant]
  14. QUETIAPINE [Concomitant]
  15. THIAMINE [Concomitant]

REACTIONS (3)
  - Angioedema [None]
  - Respiratory distress [None]
  - Pharyngeal oedema [None]
